FAERS Safety Report 21681405 (Version 1)
Quarter: 2022Q4

REPORT INFORMATION
  Report Type: Spontaneous
  Country: US (occurrence: US)
  Receive Date: 20221205
  Receipt Date: 20221205
  Transmission Date: 20230113
  Serious: Yes (Hospitalization, Other)
  Sender: FDA-Public Use
  Company Number: US-TORRENT-00012094

PATIENT
  Age: 42 Year
  Sex: Male

DRUGS (3)
  1. DAPSONE [Suspect]
     Active Substance: DAPSONE
     Indication: Adverse reaction
     Dosage: UNKNOWN
     Route: 065
  2. ENOXAPARIN [Suspect]
     Active Substance: ENOXAPARIN
     Indication: Hypercoagulation
     Dosage: UNKNOWN
     Route: 065
  3. SULFAMETHOXAZOLE\TRIMETHOPRIM [Concomitant]
     Active Substance: SULFAMETHOXAZOLE\TRIMETHOPRIM
     Indication: Pneumocystis jirovecii pneumonia
     Dosage: UNKNOWN
     Route: 065

REACTIONS (3)
  - Methaemoglobinaemia [Recovered/Resolved]
  - Dyspnoea exertional [Unknown]
  - Hypoxia [Recovered/Resolved]
